FAERS Safety Report 5419237-8 (Version None)
Quarter: 2007Q3

REPORT INFORMATION
  Report Type: 
  Country: None (occurrence: None)
  Receive Date: 20070816
  Receipt Date: 20070816
  Transmission Date: 20080115
  Serious: No
  Sender: FDA-Public Use
  Company Number: None

PATIENT
  Age: 70 Year
  Sex: Male
  Weight: 70.3075 kg

DRUGS (2)
  1. MEIJER ATHLETE'S FOOT SPRAY [Suspect]
     Indication: TINEA PEDIS
     Dosage: BRIEF SPRAY ONCE DAILY FOOT SPRAY
  2. MEIJER ATHLETE'S FOOT SPRAY [Suspect]

REACTIONS (3)
  - MEDICATION ERROR [None]
  - PAIN IN EXTREMITY [None]
  - RASH [None]
